FAERS Safety Report 9159409 (Version 1)
Quarter: 2013Q1

REPORT INFORMATION
  Report Type: Spontaneous
  Country: NL (occurrence: NL)
  Receive Date: 20130313
  Receipt Date: 20130313
  Transmission Date: 20140127
  Serious: Yes (Hospitalization)
  Sender: FDA-Public Use
  Company Number: PHHY2013NL023700

PATIENT
  Sex: Male

DRUGS (3)
  1. ZOMETA [Suspect]
     Indication: PROSTATE CANCER METASTATIC
     Dosage: 400 MG /100ML ONCE PER 28 DAYS
  2. ZOMETA [Suspect]
     Dosage: 400 MG /100ML ONCE PER 28 DAYS
     Dates: start: 20111028
  3. ZOMETA [Suspect]
     Dosage: 400 MG /100ML ONCE PER 28 DAYS
     Dates: start: 20130208

REACTIONS (3)
  - Cardiac failure [Not Recovered/Not Resolved]
  - Renal failure [Not Recovered/Not Resolved]
  - Dyspnoea [Not Recovered/Not Resolved]
